FAERS Safety Report 10072003 (Version 1)
Quarter: 2014Q1

REPORT INFORMATION
  Report Type: Spontaneous
  Country: GB (occurrence: None)
  Receive Date: 20140314
  Receipt Date: 20140314
  Transmission Date: 20141002
  Serious: Yes (Hospitalization, Other)
  Sender: FDA-Public Use
  Company Number: AUR-APL-2014-02181

PATIENT
  Age: 67 Year
  Sex: Male

DRUGS (2)
  1. CITALOPRAM [Suspect]
     Indication: DEPRESSION
     Dosage: (20 MG,1 D)
     Route: 048
     Dates: start: 1996, end: 201312
  2. RYTHMODAN [Suspect]
     Indication: CHEST PAIN
     Dates: start: 2008, end: 2010

REACTIONS (4)
  - Urinary retention [None]
  - Cholecystectomy [None]
  - Drug interaction [None]
  - Chest pain [None]
